FAERS Safety Report 5893673-8 (Version None)
Quarter: 2008Q3

REPORT INFORMATION
  Report Type: 
  Country: None (occurrence: None)
  Receive Date: 20080923
  Receipt Date: 20071009
  Transmission Date: 20090109
  Serious: No
  Sender: FDA-Public Use
  Company Number: US-ASTRAZENECA-2007UW23465

PATIENT
  Age: 60 Year
  Sex: Male
  Weight: 63.5 kg

DRUGS (12)
  1. SEROQUEL [Suspect]
     Indication: MOOD ALTERED
     Route: 048
  2. SEROQUEL [Suspect]
     Indication: DEPRESSION
     Route: 048
  3. SEROQUEL [Suspect]
     Indication: ANXIETY
     Route: 048
  4. SEROQUEL [Suspect]
     Route: 048
  5. SEROQUEL [Suspect]
     Route: 048
  6. SEROQUEL [Suspect]
     Route: 048
  7. ANTIDEPRESSANTS [Concomitant]
  8. XANAX [Concomitant]
  9. KLONOPIN [Concomitant]
  10. LUNESTA [Concomitant]
  11. BENADRYL [Concomitant]
  12. LIPITOR [Concomitant]

REACTIONS (3)
  - BLOOD CHOLESTEROL INCREASED [None]
  - BLOOD GLUCOSE ABNORMAL [None]
  - WEIGHT DECREASED [None]
